FAERS Safety Report 6484481-8 (Version None)
Quarter: 2009Q4

REPORT INFORMATION
  Report Type: 
  Country: None (occurrence: None)
  Receive Date: 20091209
  Receipt Date: 20091130
  Transmission Date: 20100525
  Serious: Yes (Other)
  Sender: FDA-Public Use
  Company Number: PHEH2009US16278

PATIENT
  Age: 75 Year
  Sex: Female

DRUGS (2)
  1. METOPROLOL TARTRATE [Suspect]
     Indication: HEART RATE INCREASED
     Dosage: 12.5 MG, BID
  2. METOPROLOL TARTRATE [Suspect]
     Indication: ATRIAL FIBRILLATION
     Dosage: 25 MG

REACTIONS (2)
  - HEART RATE DECREASED [None]
  - HEART RATE INCREASED [None]
